FAERS Safety Report 5638445-4 (Version None)
Quarter: 2008Q1

REPORT INFORMATION
  Report Type: 
  Country: None (occurrence: None)
  Receive Date: 20080221
  Receipt Date: 20080221
  Transmission Date: 20080703
  Serious: Yes (Other)
  Sender: FDA-Public Use
  Company Number: None

PATIENT
  Sex: Male
  Weight: 109.5 kg

DRUGS (1)
  1. IFOSFAMIDE [Suspect]
     Indication: HODGKIN'S DISEASE
     Dosage: 2G/M^2

REACTIONS (2)
  - ENCEPHALOPATHY [None]
  - HYPERAMMONAEMIA [None]
